FAERS Safety Report 8629440 (Version 2)
Quarter: 2013Q4

REPORT INFORMATION
  Report Type: Spontaneous
  Country: US (occurrence: US)
  Receive Date: 20120622
  Receipt Date: 20131011
  Transmission Date: 20140711
  Serious: Yes (Other)
  Sender: FDA-Public Use
  Company Number: US-ASTRAZENECA-2012SE35722

PATIENT
  Age: 534 Month
  Sex: Female

DRUGS (8)
  1. NEXIUM [Suspect]
     Route: 048
  2. ZANTAC [Concomitant]
     Dates: start: 1982
  3. TAGAMET [Concomitant]
  4. PEPCID [Concomitant]
  5. AZID [Concomitant]
  6. MYLANTA [Concomitant]
  7. ALKA-SELTZER [Concomitant]
  8. PREMARIN [Concomitant]
     Indication: HORMONE REPLACEMENT THERAPY

REACTIONS (5)
  - Osteoarthritis [Unknown]
  - Osteoporosis [Unknown]
  - Foot fracture [Unknown]
  - Ankle fracture [Unknown]
  - Upper limb fracture [Unknown]
